FAERS Safety Report 5117459-7 (Version None)
Quarter: 2006Q3

REPORT INFORMATION
  Report Type: 
  Country: None (occurrence: None)
  Receive Date: 20060929
  Receipt Date: 20060921
  Transmission Date: 20061208
  Serious: Yes (Other)
  Sender: FDA-Public Use
  Company Number: CA-BRISTOL-MYERS SQUIBB COMPANY-13518543

PATIENT
  Age: 75 Year
  Sex: Male
  Weight: 84 kg

DRUGS (14)
  1. TEQUIN [Suspect]
     Indication: RESPIRATORY TRACT INFECTION
     Dates: start: 20040908, end: 20040910
  2. FUROSEMIDE [Concomitant]
  3. PREVACID [Concomitant]
  4. TOBRADEX [Concomitant]
     Route: 047
  5. AVANDIA [Concomitant]
     Dates: start: 20040801
  6. GLYBURIDE [Concomitant]
  7. METFORMIN HCL [Concomitant]
  8. LIPITOR [Concomitant]
  9. AVAPRO [Concomitant]
  10. METOPROLOL [Concomitant]
  11. DOXAZOSIN [Concomitant]
  12. LIPIDIL [Concomitant]
  13. ALTACE [Concomitant]
  14. PRANDASE [Concomitant]

REACTIONS (1)
  - HYPOGLYCAEMIA [None]
